FAERS Safety Report 8046456-7 (Version None)
Quarter: 2012Q1

REPORT INFORMATION
  Report Type: 
  Country: None (occurrence: None)
  Receive Date: 20120113
  Receipt Date: 20120105
  Transmission Date: 20120608
  Serious: Yes (Hospitalization, Other)
  Sender: FDA-Public Use
  Company Number: GB-ABBOTT-11P-167-0871115-00

PATIENT
  Sex: Male

DRUGS (7)
  1. HUMIRA [Suspect]
     Indication: PSORIASIS
     Dates: start: 20090311, end: 20111001
  2. NICORANDIL [Concomitant]
     Indication: CARDIAC DISORDER
  3. OMEPRAZOLE [Concomitant]
     Indication: CARDIAC DISORDER
  4. SIMVASTATIN [Concomitant]
     Indication: CARDIAC DISORDER
  5. ASPIRIN [Concomitant]
     Indication: PRODUCT USED FOR UNKNOWN INDICATION
     Route: 048
  6. METHOTREXATE [Suspect]
     Indication: PSORIASIS
     Route: 048
     Dates: start: 20110810, end: 20111001
  7. AMLODIPINE [Concomitant]
     Indication: CARDIAC DISORDER

REACTIONS (3)
  - RENAL CELL CARCINOMA [None]
  - OFF LABEL USE [None]
  - ILL-DEFINED DISORDER [None]
